FAERS Safety Report 4428365-5 (Version None)
Quarter: 2004Q3

REPORT INFORMATION
  Report Type: 
  Country: None (occurrence: None)
  Receive Date: 20040813
  Receipt Date: 20040728
  Transmission Date: 20050211
  Serious: Yes (Hospitalization)
  Sender: FDA-Public Use
  Company Number: 01P-056-0109432-00

PATIENT
  Age: 31 Year
  Sex: Male

DRUGS (3)
  1. DEPAKENE [Suspect]
     Indication: LENNOX-GASTAUT SYNDROME
     Dosage: 1 IN 1 D, PER ORAL
     Route: 048
     Dates: start: 19950901
  2. TOPIRAMATE [Suspect]
     Dosage: 400 MG, 1 IN 1 D, PER ORAL
     Route: 048
     Dates: start: 19981005
  3. BROMAZEPAM` [Concomitant]

REACTIONS (9)
  - ASTHENIA [None]
  - DRUG INTERACTION [None]
  - DRUG LEVEL INCREASED [None]
  - ELECTROENCEPHALOGRAM ABNORMAL [None]
  - ENCEPHALOPATHY [None]
  - HYPERAMMONAEMIA [None]
  - MOTOR DYSFUNCTION [None]
  - THINKING ABNORMAL [None]
  - TREMOR [None]
